FAERS Safety Report 8381916-0 (Version None)
Quarter: 2012Q2

REPORT INFORMATION
  Report Type: 
  Country: None (occurrence: None)
  Receive Date: 20120522
  Receipt Date: 20120522
  Transmission Date: 20120825
  Serious: Yes (Other)
  Sender: FDA-Public Use
  Company Number: None

PATIENT
  Age: 32 Year
  Sex: Female
  Weight: 47.1741 kg

DRUGS (1)
  1. CIPROFLOXCIN 500MG [Suspect]
     Indication: PNEUMONIA
     Dosage: 2 X PER DAY
     Dates: start: 20120425, end: 20120428

REACTIONS (3)
  - POLLAKIURIA [None]
  - MUSCLE TIGHTNESS [None]
  - ASTHENIA [None]
